FAERS Safety Report 9279487 (Version 1)
Quarter: 2013Q2

REPORT INFORMATION
  Report Type: Spontaneous
  Country: US (occurrence: US)
  Receive Date: 20130508
  Receipt Date: 20130508
  Transmission Date: 20140414
  Serious: No
  Sender: FDA-Public Use
  Company Number: US-009507513-1304USA014211

PATIENT
  Sex: Female
  Weight: 88.44 kg

DRUGS (1)
  1. IMPLANON [Suspect]
     Indication: CONTRACEPTION
     Dosage: 1 DF, UNK
     Route: 059
     Dates: start: 201107, end: 201110

REACTIONS (4)
  - Metrorrhagia [Recovered/Resolved]
  - Pain in extremity [Recovered/Resolved]
  - Medical device complication [Unknown]
  - Pregnancy [Unknown]
